FAERS Safety Report 7246721-7 (Version None)
Quarter: 2011Q1

REPORT INFORMATION
  Report Type: 
  Country: None (occurrence: None)
  Receive Date: 20110127
  Receipt Date: 20100422
  Transmission Date: 20110831
  Serious: Yes (Death)
  Sender: FDA-Public Use
  Company Number: DE-JNJFOC-20110106295

PATIENT
  Age: 85 Year
  Sex: Female

DRUGS (5)
  1. CLOPIDOGREL [Concomitant]
  2. REOPRO [Suspect]
     Dosage: INFUSION FROM 21:14 TO 00:01
     Route: 042
  3. ACETYLSALICYLIC ACID SRT [Concomitant]
  4. HEPARIN [Concomitant]
  5. REOPRO [Suspect]
     Indication: ACUTE MYOCARDIAL INFARCTION
     Dosage: BOLUS @ 21:10
     Route: 042

REACTIONS (1)
  - CARDIAC TAMPONADE [None]
